FAERS Safety Report 21939016 (Version 1)
Quarter: 2023Q1

REPORT INFORMATION
  Report Type: Spontaneous
  Country: AU (occurrence: AU)
  Receive Date: 20230201
  Receipt Date: 20230201
  Transmission Date: 20230417
  Serious: Yes (Hospitalization)
  Sender: FDA-Public Use
  Company Number: AU-EXELIXIS-CABO-22053897

PATIENT
  Sex: Male

DRUGS (2)
  1. CABOMETYX [Suspect]
     Active Substance: CABOZANTINIB S-MALATE
     Indication: Anaplastic thyroid cancer
     Dosage: 60 MG
     Route: 048
  2. CABOMETYX [Suspect]
     Active Substance: CABOZANTINIB S-MALATE
     Indication: Papillary thyroid cancer

REACTIONS (3)
  - Malignant neoplasm progression [Unknown]
  - Therapy non-responder [Unknown]
  - Off label use [Unknown]
